FAERS Safety Report 8790603 (Version 1)
Quarter: 2012Q4

REPORT INFORMATION
  Report Type: 
  Country: US (occurrence: None)
  Receive Date: 20120912
  Receipt Date: 20120912
  Transmission Date: 20130627
  Serious: Yes (Hospitalization)
  Sender: FDA-Public Use
  Company Number: None

PATIENT
  Sex: Female
  Weight: 82 kg

DRUGS (2)
  1. CYCLOPHOSPHAMIDE [Suspect]
     Dates: end: 20120823
  2. DOXORUBICIN HYDROCHLORIDE [Suspect]
     Dates: end: 20120823

REACTIONS (3)
  - Pulmonary embolism [None]
  - Thrombosis [None]
  - Pneumonia [None]
